FAERS Safety Report 5211815-4 (Version None)
Quarter: 2007Q1

REPORT INFORMATION
  Report Type: 
  Country: None (occurrence: None)
  Receive Date: 20070118
  Receipt Date: 20070105
  Transmission Date: 20070707
  Serious: Yes (Hospitalization)
  Sender: FDA-Public Use
  Company Number: US-ELI_LILLY_AND_COMPANY-US200606004363

PATIENT
  Age: 72 Year
  Sex: Female
  Weight: 113.38 kg

DRUGS (6)
  1. FORTEO [Suspect]
     Indication: OSTEOPOROSIS
     Dosage: 20 UG, UNK
     Dates: start: 20040801
  2. ADVAIR DISKUS 100/50 [Concomitant]
     Dosage: 1 UNK, DAILY (1/D)
  3. ASPIRIN [Concomitant]
     Dosage: 81 MG, DAILY (1/D)
  4. ACCUPRIL [Concomitant]
     Dosage: 40 MG, UNK
  5. HYDROCHLOROTHIAZIDE [Concomitant]
     Dosage: 25 MG, DAILY (1/D)
  6. COUMADIN [Concomitant]
     Dosage: 3 MG, UNK

REACTIONS (1)
  - RESPIRATORY SYNCYTIAL VIRUS INFECTION [None]
